FAERS Safety Report 9380773 (Version 1)
Quarter: 2013Q3

REPORT INFORMATION
  Report Type: Report from Study
  Country: US (occurrence: US)
  Receive Date: 20130702
  Receipt Date: 20130702
  Transmission Date: 20140515
  Serious: Yes (Hospitalization)
  Sender: FDA-Public Use
  Company Number: US-PFIZER INC-HQ2264516OCT2000

PATIENT
  Age: 43 Year
  Sex: Female

DRUGS (7)
  1. TEMSIROLIMUS [Suspect]
     Indication: RENAL CELL CARCINOMA
     Dosage: 25 MG, WEEKLY
     Route: 042
     Dates: start: 20000927, end: 20001004
  2. ELAVIL [Concomitant]
     Dosage: UNK
     Route: 048
     Dates: start: 20000202, end: 20001025
  3. NEURONTIN [Concomitant]
     Dosage: UNK
     Route: 048
     Dates: start: 20000202, end: 20001025
  4. ATIVAN [Concomitant]
     Dosage: UNK
     Route: 048
     Dates: start: 20001011
  5. OXYCONTIN [Concomitant]
     Dosage: UNK
     Route: 048
     Dates: start: 20000926, end: 20001117
  6. PERCOCET [Concomitant]
     Dosage: UNK
     Route: 048
     Dates: start: 20000811, end: 20001117
  7. COMPAZINE [Concomitant]
     Dosage: UNK
     Route: 048
     Dates: start: 20001011

REACTIONS (3)
  - Renal failure [Recovered/Resolved]
  - Dehydration [Recovered/Resolved]
  - Pyrexia [Recovered/Resolved]
